FAERS Safety Report 7907427-1 (Version None)
Quarter: 2011Q4

REPORT INFORMATION
  Report Type: 
  Country: None (occurrence: None)
  Receive Date: 20111110
  Receipt Date: 20111104
  Transmission Date: 20120403
  Serious: Yes (Hospitalization)
  Sender: FDA-Public Use
  Company Number: FR-ABBOTT-11P-056-0871379-00

PATIENT
  Sex: Male

DRUGS (12)
  1. GLUCOPHAGE [Suspect]
     Indication: TYPE 2 DIABETES MELLITUS
     Route: 048
  2. LOSARTAN POTASSIUM AND HYDROCHLOROTHIAZIDE [Suspect]
     Indication: HYPERTENSION
     Dosage: 100MG/25MG DAILY
     Route: 048
     Dates: end: 20110907
  3. PLAVIX [Concomitant]
     Indication: CEREBROVASCULAR ACCIDENT PROPHYLAXIS
     Dosage: ONE DOSAGE FORM, ONCE
     Route: 048
  4. CLIPAL CODEINE [Concomitant]
     Indication: PRODUCT USED FOR UNKNOWN INDICATION
     Dosage: 600MG, 1 DF DAILY
     Route: 048
  5. MECIR LP [Concomitant]
     Indication: BENIGN PROSTATIC HYPERPLASIA
     Dosage: 0.4 MG DAILY, ONCE
     Route: 048
  6. LAMALINE [Concomitant]
     Indication: PRODUCT USED FOR UNKNOWN INDICATION
     Dosage: THREE TO FOUR CAPSULES DAILY
     Route: 048
  7. FENOFIBRATE [Suspect]
     Indication: BLOOD TRIGLYCERIDES INCREASED
     Route: 048
     Dates: end: 20110908
  8. NEBCIN [Suspect]
     Indication: SKIN ULCER
     Dosage: 100 MG DAILY, ONCE
     Route: 042
     Dates: start: 20110825, end: 20110831
  9. SPECIAFOLDINE [Concomitant]
     Indication: PRODUCT USED FOR UNKNOWN INDICATION
     Dosage: 5 MG DAILY, ONCE
     Route: 048
  10. POLYETHYLENE GLYCOL [Concomitant]
     Indication: PRODUCT USED FOR UNKNOWN INDICATION
     Dosage: TWO DOSAGE FORMS DAILY
     Route: 048
  11. REPAGLINIDE [Concomitant]
     Indication: TYPE 2 DIABETES MELLITUS
     Dosage: FOUR JABS DAILY, FOUR TIMES
     Route: 058
  12. AVODART [Concomitant]
     Indication: PRODUCT USED FOR UNKNOWN INDICATION
     Dosage: 0.5MG, 1 DF ONCE
     Route: 048

REACTIONS (4)
  - CREATININE RENAL CLEARANCE INCREASED [None]
  - RENAL FAILURE ACUTE [None]
  - ANURIA [None]
  - DEHYDRATION [None]
